FAERS Safety Report 7321749-7 (Version None)
Quarter: 2011Q1

REPORT INFORMATION
  Report Type: 
  Country: None (occurrence: None)
  Receive Date: 20110223
  Receipt Date: 20110223
  Transmission Date: 20110831
  Serious: Yes (Other)
  Sender: FDA-Public Use
  Company Number: None

PATIENT
  Age: 58 Year
  Sex: Female
  Weight: 58.6 kg

DRUGS (5)
  1. GASTROCROM [Concomitant]
  2. HYDROCODONE BITARTRATE [Concomitant]
  3. MIRALAX [Concomitant]
  4. ZOLPIDEM TARTRATE [Suspect]
     Indication: SLEEP DISORDER
     Dosage: 12.5 MG ONCE DAILY 047-ORAL
     Route: 048
     Dates: start: 20110127, end: 20110210
  5. VIVELLE DOT ESTRADIOL PATCH [Concomitant]

REACTIONS (7)
  - FRUSTRATION [None]
  - IMPAIRED DRIVING ABILITY [None]
  - MIDDLE INSOMNIA [None]
  - IMPAIRED WORK ABILITY [None]
  - FATIGUE [None]
  - DIZZINESS [None]
  - PRODUCT SUBSTITUTION ISSUE [None]
